FAERS Safety Report 9459487 (Version 1)
Quarter: 2013Q3

REPORT INFORMATION
  Report Type: Spontaneous
  Country: DE (occurrence: DE)
  Receive Date: 20130815
  Receipt Date: 20130815
  Transmission Date: 20140515
  Serious: Yes (Other)
  Sender: FDA-Public Use
  Company Number: DE-BAYER-2013-096163

PATIENT
  Sex: Female

DRUGS (3)
  1. BETAFERON [Suspect]
     Indication: MULTIPLE SCLEROSIS
     Dosage: 250 ?G/ML, QD
  2. BETAFERON [Suspect]
     Indication: MULTIPLE SCLEROSIS
  3. BACLOFEN [Concomitant]
     Dosage: 10 MG, QD
     Route: 048

REACTIONS (3)
  - Complication of delivery [None]
  - Death [None]
  - Exposure during pregnancy [None]
